FAERS Safety Report 4435026-5 (Version None)
Quarter: 2004Q3

REPORT INFORMATION
  Report Type: 
  Country: None (occurrence: None)
  Receive Date: 20040826
  Receipt Date: 20040826
  Transmission Date: 20050211
  Serious: Yes (Other)
  Sender: FDA-Public Use
  Company Number: None

PATIENT
  Age: 40 Year
  Sex: Female
  Weight: 99.7913 kg

DRUGS (5)
  1. OXYCONTIN [Suspect]
     Indication: CHEST PAIN
     Dosage: 80 MG TWO TABS PO Q 12H
     Route: 048
     Dates: start: 20040415, end: 20040422
  2. OXYCONTIN [Suspect]
     Indication: COMPRESSION FRACTURE
     Dosage: 80 MG TWO TABS PO Q 12H
     Route: 048
     Dates: start: 20040415, end: 20040422
  3. OXYCONTIN [Suspect]
     Indication: OSTEOMYELITIS
     Dosage: 80 MG TWO TABS PO Q 12H
     Route: 048
     Dates: start: 20040415, end: 20040422
  4. FERCOCET [Concomitant]
  5. XANAX [Concomitant]

REACTIONS (3)
  - PARAESTHESIA [None]
  - PHARMACEUTICAL PRODUCT COMPLAINT [None]
  - TINNITUS [None]
